FAERS Safety Report 9411472 (Version 2)
Quarter: 2013Q3

REPORT INFORMATION
  Report Type: Spontaneous
  Country: US (occurrence: US)
  Receive Date: 20130722
  Receipt Date: 20130816
  Transmission Date: 20140515
  Serious: Yes (Hospitalization)
  Sender: FDA-Public Use
  Company Number: US-AMGEN-USASP2013049709

PATIENT
  Age: 63 Year
  Sex: Female
  Weight: 82.09 kg

DRUGS (6)
  1. NPLATE [Suspect]
     Indication: IMMUNE THROMBOCYTOPENIC PURPURA
     Dosage: 1 MUG/KG, UNK
     Route: 058
     Dates: start: 20130215
  2. SPIRONOLACTONE [Concomitant]
  3. VERAPAMIL [Concomitant]
  4. CLARINEX                           /01202601/ [Concomitant]
  5. ESTROGEN [Concomitant]
  6. XANAX [Concomitant]
     Indication: SLEEP DISORDER

REACTIONS (6)
  - Platelet count decreased [Not Recovered/Not Resolved]
  - Weight increased [Unknown]
  - Bone pain [Recovering/Resolving]
  - Fibromyalgia [Not Recovered/Not Resolved]
  - Anxiety [Unknown]
  - Sleep disorder [Not Recovered/Not Resolved]
